FAERS Safety Report 7058183-3 (Version None)
Quarter: 2010Q4

REPORT INFORMATION
  Report Type: 
  Country: None (occurrence: None)
  Receive Date: 20101022
  Receipt Date: 20101012
  Transmission Date: 20110411
  Serious: Yes (Other)
  Sender: FDA-Public Use
  Company Number: JP-PFIZER INC-2010115238

PATIENT
  Age: 68 Year
  Sex: Female
  Weight: 65 kg

DRUGS (7)
  1. LIPITOR [Suspect]
     Indication: HYPERLIPIDAEMIA
     Dosage: 5 MG, 1X/DAY, UID/QD
     Route: 048
     Dates: start: 20100804, end: 20100806
  2. LOSARTAN POTASSIUM AND HYDROCHLOROTHIAZIDE [Concomitant]
     Dosage: UNK
     Route: 048
     Dates: start: 20090622
  3. 8-HOUR BAYER [Concomitant]
     Dosage: UNK
     Route: 048
     Dates: start: 20020617
  4. HERBESSER R [Concomitant]
     Dosage: UNK
     Route: 048
  5. ALLOZYM [Concomitant]
     Dosage: UNK
     Dates: start: 20041028
  6. NITOROL [Concomitant]
     Dosage: UNK
     Dates: start: 20040913
  7. EURODIN [Concomitant]
     Dosage: UNK
     Dates: start: 20040221

REACTIONS (2)
  - DIABETES MELLITUS [None]
  - HEPATIC FUNCTION ABNORMAL [None]
